FAERS Safety Report 5063286-9 (Version None)
Quarter: 2006Q3

REPORT INFORMATION
  Report Type: 
  Country: None (occurrence: None)
  Receive Date: 20060703
  Receipt Date: 20060512
  Transmission Date: 20061208
  Serious: No
  Sender: FDA-Public Use
  Company Number: 2006PV013736

PATIENT
  Age: 48 Year
  Sex: Male
  Weight: 173.7277 kg

DRUGS (5)
  1. SYMLIN [Suspect]
     Indication: DIABETES MELLITUS NON-INSULIN-DEPENDENT
     Dosage: SEE IMAGE
     Route: 058
     Dates: start: 20060408, end: 20060506
  2. SYMLIN [Suspect]
     Indication: DIABETES MELLITUS NON-INSULIN-DEPENDENT
     Dosage: SEE IMAGE
     Route: 058
     Dates: start: 20060507
  3. NPH INSULIN [Concomitant]
  4. HUMULIN 70/30 [Concomitant]
  5. METFORMIN [Concomitant]

REACTIONS (4)
  - DRUG INEFFECTIVE [None]
  - VISUAL DISTURBANCE [None]
  - WEIGHT DECREASED [None]
  - WOUND INFECTION [None]
